FAERS Safety Report 4667268-8 (Version None)
Quarter: 2005Q2

REPORT INFORMATION
  Report Type: 
  Country: None (occurrence: None)
  Receive Date: 20050520
  Receipt Date: 20050511
  Transmission Date: 20051028
  Serious: Yes (Life-Threatening, Hospitalization, Other)
  Sender: FDA-Public Use
  Company Number: JP-JNJFOC-20050502615

PATIENT
  Age: 43 Year
  Sex: Male

DRUGS (11)
  1. RISPERDAL [Suspect]
     Indication: SCHIZOPHRENIA
     Route: 049
  2. IMPROMEN [Suspect]
     Indication: SCHIZOPHRENIA
     Route: 049
  3. HALDOL [Suspect]
     Indication: SCHIZOPHRENIA
     Route: 049
  4. CHLOROPROMAZINE [Suspect]
     Indication: SCHIZOPHRENIA
     Route: 049
  5. LEVOPROMAZINE [Concomitant]
     Indication: SCHIZOPHRENIA
     Route: 049
  6. BIPERIDEN HYDROCHLORIDE [Concomitant]
     Route: 049
  7. PROMETHAZINE HCL [Concomitant]
     Route: 049
  8. ETIZOLAM [Concomitant]
  9. CLOXAZOLAM [Concomitant]
  10. HALOXAZOLAM [Concomitant]
  11. FLUNITRAZEPAM [Concomitant]

REACTIONS (16)
  - CONVULSION [None]
  - DEPRESSED LEVEL OF CONSCIOUSNESS [None]
  - DISSEMINATED INTRAVASCULAR COAGULATION [None]
  - ELECTROENCEPHALOGRAM ABNORMAL [None]
  - FIBRIN DEGRADATION PRODUCTS INCREASED [None]
  - HYPONATRAEMIA [None]
  - POLYDIPSIA [None]
  - PROTHROMBIN TIME PROLONGED [None]
  - PSYCHOMOTOR HYPERACTIVITY [None]
  - PYREXIA [None]
  - SELF INJURIOUS BEHAVIOUR [None]
  - SYSTEMIC INFLAMMATORY RESPONSE SYNDROME [None]
  - SYSTOLIC HYPERTENSION [None]
  - TACHYCARDIA [None]
  - THROMBOCYTOPENIA [None]
  - WATER INTOXICATION [None]
